FAERS Safety Report 17378242 (Version 1)
Quarter: 2020Q1

REPORT INFORMATION
  Report Type: Spontaneous
  Country: US (occurrence: US)
  Receive Date: 20200206
  Receipt Date: 20200206
  Transmission Date: 20200409
  Serious: No
  Sender: FDA-Public Use
  Company Number: US-ABBVIE-19K-163-2668066-00

PATIENT
  Sex: Female

DRUGS (1)
  1. HUMIRA [Suspect]
     Active Substance: ADALIMUMAB
     Indication: RHEUMATOID ARTHRITIS
     Route: 058
     Dates: start: 2012

REACTIONS (11)
  - Pain [Unknown]
  - Swelling [Unknown]
  - Rheumatoid arthritis [Unknown]
  - Neck pain [Unknown]
  - Joint injury [Not Recovered/Not Resolved]
  - Musculoskeletal stiffness [Unknown]
  - Loss of personal independence in daily activities [Unknown]
  - Eyelid ptosis [Unknown]
  - Peripheral swelling [Unknown]
  - Injection site reaction [Unknown]
  - Pain [Unknown]

NARRATIVE: CASE EVENT DATE: 2016
